FAERS Safety Report 11320116 (Version 1)
Quarter: 2015Q3

REPORT INFORMATION
  Report Type: Spontaneous
  Country: US (occurrence: US)
  Receive Date: 20150729
  Receipt Date: 20150729
  Transmission Date: 20151125
  Serious: No
  Sender: FDA-Public Use
  Company Number: US-CELGENEUS-USA-2015055791

PATIENT
  Age: 73 Year
  Sex: Female

DRUGS (3)
  1. POMALYST [Suspect]
     Active Substance: POMALIDOMIDE
     Route: 048
     Dates: start: 201505
  2. POMALYST [Suspect]
     Active Substance: POMALIDOMIDE
     Indication: PLASMA CELL MYELOMA
     Route: 048
     Dates: start: 201308
  3. POMALYST [Suspect]
     Active Substance: POMALIDOMIDE
     Dosage: 3-2 MG
     Route: 048
     Dates: start: 201311

REACTIONS (1)
  - Full blood count abnormal [Unknown]

NARRATIVE: CASE EVENT DATE: 201505
